FAERS Safety Report 25760957 (Version 1)
Quarter: 2025Q3

REPORT INFORMATION
  Report Type: Spontaneous
  Country: CA (occurrence: CA)
  Receive Date: 20250904
  Receipt Date: 20250904
  Transmission Date: 20251021
  Serious: Yes (Life-Threatening, Hospitalization)
  Sender: CIPHER
  Company Number: CA-CIPHER-2023-CA-000603

PATIENT
  Age: 31 Year
  Sex: Male

DRUGS (2)
  1. DURELA [Suspect]
     Active Substance: TRAMADOL HYDROCHLORIDE
     Indication: Product used for unknown indication
  2. PAROXETINE [Suspect]
     Active Substance: PAROXETINE
     Indication: Pilonidal disease

REACTIONS (3)
  - Serotonin syndrome [Recovering/Resolving]
  - Intentional product misuse [Unknown]
  - Pilonidal disease [Unknown]
